FAERS Safety Report 21462200 (Version 1)
Quarter: 2022Q4

REPORT INFORMATION
  Report Type: Spontaneous
  Country: US (occurrence: US)
  Receive Date: 20221016
  Receipt Date: 20221016
  Transmission Date: 20230113
  Serious: Yes (Death, Other)
  Sender: FDA-Public Use
  Company Number: US-drreddys-LIT/USA/22/0155774

PATIENT
  Age: 7 Year
  Sex: Female

DRUGS (8)
  1. BORTEZOMIB [Suspect]
     Active Substance: BORTEZOMIB
     Indication: Acute myeloid leukaemia
     Dosage: 1.3 MG/M2 ON DAYS 2, 4, 8, 11, 22, 25, 29 AND 32
     Route: 042
  2. DEXAMETHASONE [Suspect]
     Active Substance: DEXAMETHASONE
     Indication: Acute myeloid leukaemia
     Dosage: 10 MG/M2/DOSE ON DAYS 1, 2, 4, 5, 8, 9, 11, AND 12
     Route: 048
  3. PANOBINOSTAT [Suspect]
     Active Substance: PANOBINOSTAT
     Indication: Acute myeloid leukaemia
     Dosage: 20 MG ON DAYS 1, 3, 5, 8, 10, AND 12
     Route: 048
  4. DAUNORUBICIN [Suspect]
     Active Substance: DAUNORUBICIN
     Indication: Acute myeloid leukaemia
  5. CYTARABINE [Suspect]
     Active Substance: CYTARABINE
     Indication: Acute myeloid leukaemia
  6. AZACITIDINE [Concomitant]
     Active Substance: AZACITIDINE
     Indication: Acute myeloid leukaemia
  7. SORAFENIB [Concomitant]
     Active Substance: SORAFENIB
     Indication: Acute myeloid leukaemia
  8. DECITABINE [Concomitant]
     Active Substance: DECITABINE
     Indication: Acute myeloid leukaemia

REACTIONS (6)
  - Staphylococcal infection [Fatal]
  - Aspergillus infection [Fatal]
  - Pseudomonas infection [Fatal]
  - Enterococcal infection [Fatal]
  - Epstein-Barr virus infection [Fatal]
  - Drug ineffective [Unknown]
